FAERS Safety Report 13960651 (Version 1)
Quarter: 2017Q3

REPORT INFORMATION
  Report Type: Spontaneous
  Country: US (occurrence: US)
  Receive Date: 20170912
  Receipt Date: 20170912
  Transmission Date: 20171128
  Serious: Yes (Hospitalization)
  Sender: FDA-Public Use
  Company Number: US-B.I. PHARMACEUTICALS,INC./RIDGEFIELD-2017-BI-049765

PATIENT
  Age: 57 Year
  Sex: Female

DRUGS (4)
  1. METFORMIN [Concomitant]
     Indication: PRODUCT USED FOR UNKNOWN INDICATION
     Dosage: 500 MG XL TWICE DAY;  FORM STRENGTH: 500 MG XL; FORMULATION: TABLET
     Route: 048
  2. ESTROGEN [Concomitant]
     Active Substance: ESTROGENS
     Indication: PRODUCT USED FOR UNKNOWN INDICATION
     Route: 065
  3. CRESTOR [Concomitant]
     Indication: PRODUCT USED FOR UNKNOWN INDICATION
     Dosage: 10 MG;  FORM STRENGTH: 10 MG; FORMULATION: TABLET
     Route: 048
  4. JARDIANCE [Suspect]
     Active Substance: EMPAGLIFLOZIN
     Indication: TYPE 2 DIABETES MELLITUS
     Dosage: FORM STRENGTH: 10 MG;? ADMINISTRATION CORRECT? YES ?ACTION(S) TAKEN WITH PRODUCT: DRUG WITHDRAWN
     Route: 048
     Dates: start: 20170825, end: 20170901

REACTIONS (4)
  - Diabetic ketoacidosis [Recovered/Resolved]
  - Diarrhoea [Unknown]
  - Nausea [Unknown]
  - Chest pain [Unknown]

NARRATIVE: CASE EVENT DATE: 20170826
